FAERS Safety Report 16176801 (Version 1)
Quarter: 2019Q2

REPORT INFORMATION
  Report Type: Spontaneous
  Country: US (occurrence: US)
  Receive Date: 20190409
  Receipt Date: 20190409
  Transmission Date: 20190711
  Serious: No
  Sender: FDA-Public Use
  Company Number: US-BAUSCH-BL-2019-009887

PATIENT
  Age: 84 Year
  Sex: Female

DRUGS (1)
  1. NEOMYCIN AND POLYMYXIN B SULFATES AND HYDROCORTISONE OTIC SOLUTION [Suspect]
     Active Substance: HYDROCORTISONE\NEOMYCIN SULFATE\POLYMYXIN B SULFATE
     Indication: EAR INFECTION
     Dosage: IN THE LEFT EAR
     Route: 001
     Dates: start: 20190327, end: 20190329

REACTIONS (8)
  - Rhinalgia [Recovering/Resolving]
  - Paraesthesia [Recovering/Resolving]
  - Ear pain [Recovering/Resolving]
  - Swelling face [Recovering/Resolving]
  - Instillation site pruritus [Recovering/Resolving]
  - Oral pain [Recovering/Resolving]
  - Ear discomfort [Recovering/Resolving]
  - Hypoacusis [Recovering/Resolving]

NARRATIVE: CASE EVENT DATE: 20190327
